FAERS Safety Report 24237889 (Version 1)
Quarter: 2024Q3

REPORT INFORMATION
  Report Type: Spontaneous
  Country: US (occurrence: None)
  Receive Date: 20240821
  Receipt Date: 20240821
  Transmission Date: 20241016
  Serious: Yes (Other)
  Sender: Public
  Company Number: None

PATIENT
  Age: 30 Year
  Sex: Male

DRUGS (1)
  1. GLEOSTINE [Suspect]
     Active Substance: LOMUSTINE
     Indication: Brain neoplasm malignant
     Dosage: OTHER FREQUENCY : EVERY 6 WEES;?

REACTIONS (5)
  - Vision blurred [None]
  - Fatigue [None]
  - Nausea [None]
  - Vomiting [None]
  - Decreased appetite [None]
